FAERS Safety Report 16286162 (Version 2)
Quarter: 2019Q3

REPORT INFORMATION
  Report Type: Spontaneous
  Country: US (occurrence: US)
  Receive Date: 20190508
  Receipt Date: 20190924
  Transmission Date: 20191004
  Serious: Yes (Other)
  Sender: FDA-Public Use
  Company Number: US-LEXICON PHARMACEUTICALS, INC-19-1606-00499

PATIENT
  Sex: Male

DRUGS (3)
  1. QUESTRAN [Concomitant]
     Active Substance: CHOLESTYRAMINE
  2. TELOTRISTAT ETHYL [Suspect]
     Active Substance: TELOTRISTAT ETHYL
     Indication: CARCINOID SYNDROME
     Route: 048
     Dates: start: 20171107
  3. LOMOTIL [Concomitant]
     Active Substance: ATROPINE SULFATE\DIPHENOXYLATE HYDROCHLORIDE

REACTIONS (2)
  - Gastrointestinal surgery [Unknown]
  - Abdominal pain [Unknown]
